FAERS Safety Report 7726309-1 (Version None)
Quarter: 2011Q3

REPORT INFORMATION
  Report Type: 
  Country: None (occurrence: None)
  Receive Date: 20110902
  Receipt Date: 20110824
  Transmission Date: 20111222
  Serious: Yes (Hospitalization)
  Sender: FDA-Public Use
  Company Number: DE-TEVA-298429GER

PATIENT
  Sex: Female
  Weight: 45 kg

DRUGS (8)
  1. GEMCITABINE [Suspect]
     Route: 042
     Dates: start: 20110118
  2. GEMCITABINE [Suspect]
     Route: 042
     Dates: start: 20110208
  3. GEMCITABINE [Suspect]
     Route: 042
     Dates: start: 20101220
  4. GEMCITABINE [Suspect]
     Route: 042
     Dates: start: 20101228
  5. GEMCITABINE [Suspect]
     Route: 042
     Dates: start: 20110110
  6. GEMCITABINE [Suspect]
     Indication: TRANSITIONAL CELL CARCINOMA
     Route: 042
     Dates: start: 20101213, end: 20110610
  7. GEMCITABINE [Suspect]
     Route: 042
     Dates: start: 20110125
  8. CISPLATIN [Concomitant]
     Indication: TRANSITIONAL CELL CARCINOMA

REACTIONS (3)
  - NAUSEA [None]
  - PNEUMONIA [None]
  - PYREXIA [None]
